FAERS Safety Report 9075838 (Version 1)
Quarter: 2013Q1

REPORT INFORMATION
  Report Type: Report from Study
  Country: US (occurrence: US)
  Receive Date: 20130129
  Receipt Date: 20130129
  Transmission Date: 20140127
  Serious: No
  Sender: FDA-Public Use
  Company Number: US-ABBOTT-12P-163-0940264-00

PATIENT
  Sex: 0
  Weight: 63.56 kg

DRUGS (3)
  1. HUMIRA 40 MG/0.8 ML PEN [Suspect]
     Indication: RHEUMATOID ARTHRITIS
  2. TRICOR [Concomitant]
     Indication: BLOOD CHOLESTEROL INCREASED
  3. TYLENOL #4 [Concomitant]
     Indication: ARTHRALGIA

REACTIONS (1)
  - Diabetes mellitus [Not Recovered/Not Resolved]
